FAERS Safety Report 13964439 (Version 2)
Quarter: 2017Q3

REPORT INFORMATION
  Report Type: Spontaneous
  Country: DZ (occurrence: DZ)
  Receive Date: 20170913
  Receipt Date: 20170915
  Transmission Date: 20171128
  Serious: Yes (Life-Threatening, Hospitalization, Other)
  Sender: FDA-Public Use
  Company Number: DZ-PFIZER INC-2017394510

PATIENT
  Age: 70 Year
  Sex: Male

DRUGS (4)
  1. LYRICA [Concomitant]
     Active Substance: PREGABALIN
     Indication: SPINAL CORD DISORDER
     Dosage: 150 MG, 2X/DAY
     Route: 048
  2. TAREG [Concomitant]
     Active Substance: VALSARTAN
     Indication: HYPERTENSION
     Dosage: 80 MG, 1X/DAY
     Route: 048
  3. CELEBREX [Suspect]
     Active Substance: CELECOXIB
     Indication: SPINAL CORD COMPRESSION
     Dosage: 200 MG, 1X/DAY
     Route: 048
     Dates: start: 20170906, end: 20170906
  4. CELEBREX [Suspect]
     Active Substance: CELECOXIB
     Indication: ARTHRALGIA

REACTIONS (9)
  - Respiratory distress [Recovered/Resolved]
  - Gout [Unknown]
  - Rash generalised [Recovered/Resolved]
  - Vertigo [Recovered/Resolved]
  - Laryngeal discomfort [Recovered/Resolved]
  - Loss of consciousness [Recovered/Resolved]
  - Blood pressure decreased [Recovered/Resolved]
  - Choking [Recovered/Resolved]
  - Angioedema [Recovered/Resolved]

NARRATIVE: CASE EVENT DATE: 20170906
